FAERS Safety Report 8428519-7 (Version None)
Quarter: 2012Q2

REPORT INFORMATION
  Report Type: 
  Country: None (occurrence: None)
  Receive Date: 20120612
  Receipt Date: 20120531
  Transmission Date: 20120825
  Serious: Yes (Other)
  Sender: FDA-Public Use
  Company Number: CO-AMGEN-COLSP2012027982

PATIENT
  Age: 45 Year
  Sex: Female

DRUGS (2)
  1. METHOTREXATE [Concomitant]
     Indication: RHEUMATOID ARTHRITIS
     Dosage: 1 TABLET DAILY
     Route: 048
  2. ENBREL [Suspect]
     Indication: RHEUMATOID ARTHRITIS
     Dosage: 50 MG, EVERY 8 DAYS
     Route: 058
     Dates: start: 20120411, end: 20120424

REACTIONS (6)
  - INFLUENZA [None]
  - INJECTION SITE PAIN [None]
  - VIRAL INFECTION [None]
  - MENOPAUSE [None]
  - CANDIDIASIS [None]
  - INJECTION SITE SWELLING [None]
